FAERS Safety Report 15940661 (Version 2)
Quarter: 2019Q1

REPORT INFORMATION
  Report Type: Spontaneous
  Country: US (occurrence: US)
  Receive Date: 20190208
  Receipt Date: 20190225
  Transmission Date: 20190417
  Serious: Yes (Other)
  Sender: FDA-Public Use
  Company Number: US-LUNDBECK-DKLU2060223

PATIENT
  Sex: Male
  Weight: 15 kg

DRUGS (6)
  1. ONFI [Suspect]
     Active Substance: CLOBAZAM
     Indication: LENNOX-GASTAUT SYNDROME
     Route: 065
     Dates: start: 20150612
  2. ONFI [Suspect]
     Active Substance: CLOBAZAM
     Route: 065
     Dates: start: 20150612
  3. ONFI [Suspect]
     Active Substance: CLOBAZAM
     Route: 048
  4. TOPIRAMATE. [Concomitant]
     Active Substance: TOPIRAMATE
     Indication: PRODUCT USED FOR UNKNOWN INDICATION
     Route: 065
  5. TOPIRAMATE. [Concomitant]
     Active Substance: TOPIRAMATE
     Route: 065
  6. KEPPRA [Concomitant]
     Active Substance: LEVETIRACETAM
     Indication: LENNOX-GASTAUT SYNDROME
     Route: 048

REACTIONS (2)
  - Drug withdrawal convulsions [Recovered/Resolved]
  - Product dose omission [Unknown]
